FAERS Safety Report 4701124-1 (Version None)
Quarter: 2005Q2

REPORT INFORMATION
  Report Type: 
  Country: None (occurrence: None)
  Receive Date: 20050628
  Receipt Date: 20050406
  Transmission Date: 20051028
  Serious: Yes (Hospitalization)
  Sender: FDA-Public Use
  Company Number: DE-ABBOTT-05P-062-0296845-00

PATIENT
  Sex: Male
  Weight: 66 kg

DRUGS (5)
  1. KALETRA [Suspect]
     Indication: HIV INFECTION
     Route: 048
     Dates: start: 20020808
  2. KALETRA [Suspect]
     Route: 048
     Dates: start: 20030405
  3. VIREAD [Concomitant]
     Indication: HIV INFECTION
     Route: 048
     Dates: start: 20020808
  4. LAMIVUDINE [Concomitant]
     Indication: HIV INFECTION
     Route: 048
     Dates: start: 20020808
  5. ESOMEPRAZOLE [Concomitant]
     Indication: DRUG USE FOR UNKNOWN INDICATION
     Route: 048

REACTIONS (18)
  - ABSCESS [None]
  - ADENOCARCINOMA [None]
  - ANOREXIA [None]
  - ATELECTASIS [None]
  - COLON CANCER [None]
  - COUGH [None]
  - HAEMANGIOMA [None]
  - HAEMORRHAGE [None]
  - HEPATIC HAEMATOMA [None]
  - HERNIA [None]
  - IMPAIRED HEALING [None]
  - INCISIONAL HERNIA [None]
  - INFLAMMATION [None]
  - LIVER ABSCESS [None]
  - PLEURAL EFFUSION [None]
  - TACHYCARDIA [None]
  - WEIGHT DECREASED [None]
  - WOUND DEHISCENCE [None]
